APPROVED DRUG PRODUCT: MECLODIUM
Active Ingredient: MECLOFENAMATE SODIUM
Strength: EQ 100MG BASE
Dosage Form/Route: CAPSULE;ORAL
Application: A071381 | Product #001
Applicant: QUANTUM PHARMICS LTD
Approved: Jul 14, 1987 | RLD: No | RS: No | Type: DISCN